FAERS Safety Report 9751650 (Version 1)
Quarter: 2013Q4

REPORT INFORMATION
  Report Type: Report from Study
  Country: CA (occurrence: CA)
  Receive Date: 20131212
  Receipt Date: 20131212
  Transmission Date: 20140711
  Serious: Yes (Hospitalization)
  Sender: FDA-Public Use
  Company Number: CA-ABBVIE-13P-028-1177968-00

PATIENT
  Sex: Male
  Weight: 63.56 kg

DRUGS (3)
  1. KALETRA 200/50 [Suspect]
     Indication: ANTIRETROVIRAL THERAPY
     Dosage: 200/50 MG2 TABS BID
     Route: 048
     Dates: start: 2008
  2. TRUVADA [Concomitant]
     Indication: HIV INFECTION
     Dosage: 200/300 MG
     Route: 048
  3. COMBIVIR [Concomitant]
     Indication: HIV INFECTION
     Dosage: 300/600 MG
     Route: 048

REACTIONS (6)
  - Stab wound [Unknown]
  - Mobility decreased [Unknown]
  - Gait disturbance [Unknown]
  - Hypoaesthesia [Recovering/Resolving]
  - Emotional distress [Unknown]
  - Fear [Unknown]
